FAERS Safety Report 8277911-2 (Version None)
Quarter: 2012Q2

REPORT INFORMATION
  Report Type: 
  Country: None (occurrence: None)
  Receive Date: 20120412
  Receipt Date: 20120331
  Transmission Date: 20120825
  Serious: Yes (Death, Hospitalization)
  Sender: FDA-Public Use
  Company Number: SK-ELI_LILLY_AND_COMPANY-SK201203005054

PATIENT
  Age: 88 Year
  Sex: Male

DRUGS (9)
  1. FORTEO [Suspect]
     Indication: OSTEOPOROSIS
     Dosage: 20 UG, QD
     Route: 058
     Dates: start: 20111220
  2. PREDUCTAL [Concomitant]
  3. DORSIFLEX [Concomitant]
  4. FLAVOBION [Concomitant]
  5. MELOXICAM [Concomitant]
  6. MYDOCALM [Concomitant]
  7. VITAMIN D [Concomitant]
  8. VITACALCIN [Concomitant]
  9. UNDESTOR [Concomitant]

REACTIONS (7)
  - HEPATIC CIRRHOSIS [None]
  - MULTI-ORGAN FAILURE [None]
  - ARTERIOSCLEROSIS [None]
  - ASCITES [None]
  - MYOCARDIAL ISCHAEMIA [None]
  - BRONCHOPNEUMONIA [None]
  - CACHEXIA [None]
